FAERS Safety Report 20492822 (Version 7)
Quarter: 2022Q2

REPORT INFORMATION
  Report Type: Other
  Country: US (occurrence: None)
  Receive Date: 20220219
  Receipt Date: 20220621
  Transmission Date: 20220720
  Serious: Yes (Hospitalization)
  Sender: FDA-Public Use
  Company Number: US-ROCHE-3024209

PATIENT
  Sex: Male
  Weight: 63.106 kg

DRUGS (11)
  1. ESBRIET [Suspect]
     Active Substance: PIRFENIDONE
     Indication: Pulmonary fibrosis
     Dosage: TAKE 1 TABLET BY MOUTH EVERY 8 HOURS
     Route: 048
  2. ESBRIET [Suspect]
     Active Substance: PIRFENIDONE
     Indication: Obstructive sleep apnoea syndrome
  3. ESBRIET [Suspect]
     Active Substance: PIRFENIDONE
     Indication: Coronary artery disease
  4. ESBRIET [Suspect]
     Active Substance: PIRFENIDONE
     Indication: Dyspnoea
  5. OFEV [Suspect]
     Active Substance: NINTEDANIB
     Indication: Product used for unknown indication
     Route: 065
  6. MONTELUKAST [Concomitant]
     Active Substance: MONTELUKAST SODIUM
  7. LOSARTAN [Concomitant]
     Active Substance: LOSARTAN
  8. METOPROLOL SUCCINATE [Concomitant]
     Active Substance: METOPROLOL SUCCINATE
  9. LEVEMIR [Concomitant]
     Active Substance: INSULIN DETEMIR
  10. LOVASTATIN [Concomitant]
     Active Substance: LOVASTATIN
  11. LISINOPRIL [Concomitant]
     Active Substance: LISINOPRIL

REACTIONS (3)
  - Myocardial infarction [Unknown]
  - Pallor [Unknown]
  - Diarrhoea [Recovered/Resolved]
